FAERS Safety Report 20002742 (Version 1)
Quarter: 2021Q4

REPORT INFORMATION
  Report Type: Spontaneous
  Country: US (occurrence: US)
  Receive Date: 20211028
  Receipt Date: 20211028
  Transmission Date: 20220303
  Serious: No
  Sender: FDA-Public Use
  Company Number: US-ALMIRALL, LLC-2021AQU000217

PATIENT

DRUGS (1)
  1. AZELEX [Suspect]
     Active Substance: AZELAIC ACID
     Dosage: UNK
     Route: 061

REACTIONS (3)
  - Rosacea [Not Recovered/Not Resolved]
  - Off label use [Unknown]
  - Product storage error [Unknown]
